FAERS Safety Report 7293892-2 (Version None)
Quarter: 2011Q1

REPORT INFORMATION
  Report Type: 
  Country: None (occurrence: None)
  Receive Date: 20110215
  Receipt Date: 20110208
  Transmission Date: 20110831
  Serious: Yes (Death)
  Sender: FDA-Public Use
  Company Number: JP-PFIZER INC-2011029494

PATIENT
  Sex: Male
  Weight: 78 kg

DRUGS (7)
  1. RINDERON-V [Concomitant]
     Indication: RENAL CELL CARCINOMA
     Dosage: 4 MG DAILY
     Route: 048
     Dates: end: 20101124
  2. OXYCONTIN [Concomitant]
     Indication: RENAL CELL CARCINOMA
     Dosage: 10 MG DIALY
     Route: 048
     Dates: end: 20101122
  3. NORVASC [Concomitant]
     Dosage: 2.5 MG DAILY
     Route: 048
     Dates: end: 20101122
  4. ALFAROL [Concomitant]
     Dosage: 0.5 UG DAILY
     Route: 048
     Dates: end: 20101122
  5. TEMSIROLIMUS [Suspect]
     Indication: RENAL CELL CARCINOMA
     Dosage: 25 MG, WEEKLY
     Dates: start: 20101117
  6. SUTENT [Suspect]
     Indication: RENAL CELL CARCINOMA
     Dosage: UNK
     Dates: start: 20100809, end: 20101116
  7. DIPHENHYDRAMINE [Concomitant]
     Indication: PROPHYLAXIS
     Dosage: 30 MG DAILY
     Route: 048

REACTIONS (1)
  - DEATH [None]
